FAERS Safety Report 11766263 (Version 3)
Quarter: 2015Q4

REPORT INFORMATION
  Report Type: Report from Study
  Country: US (occurrence: US)
  Receive Date: 20151123
  Receipt Date: 20151126
  Transmission Date: 20160304
  Serious: Yes (Other)
  Sender: FDA-Public Use
  Company Number: US-AMGEN-USASL2015122461

PATIENT
  Age: 29 Year
  Sex: Female

DRUGS (1)
  1. ENBREL [Suspect]
     Active Substance: ETANERCEPT
     Indication: PSORIATIC ARTHROPATHY
     Dosage: 50 MG, WEEKLY
     Route: 065
     Dates: start: 20151116, end: 201511

REACTIONS (16)
  - Oropharyngeal pain [Unknown]
  - Injection site discomfort [Unknown]
  - Gingival disorder [Unknown]
  - Injection site pain [Unknown]
  - Drug hypersensitivity [Unknown]
  - Oral disorder [Unknown]
  - Hypoaesthesia oral [Unknown]
  - Injection site erythema [Unknown]
  - Injection site reaction [Unknown]
  - Injection site discolouration [Unknown]
  - Lip haemorrhage [Unknown]
  - Injection site induration [Unknown]
  - Lip discolouration [Unknown]
  - Injection site swelling [Unknown]
  - Laryngeal disorder [Unknown]
  - Throat tightness [Unknown]

NARRATIVE: CASE EVENT DATE: 201511
